FAERS Safety Report 5845976-0 (Version None)
Quarter: 2008Q3

REPORT INFORMATION
  Report Type: 
  Country: None (occurrence: None)
  Receive Date: 20080814
  Receipt Date: 20080630
  Transmission Date: 20090109
  Serious: Yes (Death, Hospitalization)
  Sender: FDA-Public Use
  Company Number: JP-PFIZER INC-2008046929

PATIENT
  Sex: Male

DRUGS (15)
  1. MIGLITOL TABLET [Suspect]
     Indication: DIABETES MELLITUS
     Dosage: DAILY DOSE:150MG
     Route: 048
     Dates: start: 20080401, end: 20080526
  2. LOPEMIN [Suspect]
     Indication: IRRITABLE BOWEL SYNDROME
     Dosage: DAILY DOSE:2MG
     Route: 048
     Dates: start: 20080405, end: 20080526
  3. COLONEL [Suspect]
     Dosage: DAILY DOSE:1800MG
     Route: 048
     Dates: start: 20080408, end: 20080526
  4. ACECOL [Concomitant]
     Indication: CARDIAC FAILURE
     Dosage: DAILY DOSE:2MG
     Route: 048
  5. ANCARON [Concomitant]
     Indication: CARDIAC FAILURE
     Dosage: DAILY DOSE:200MG
     Route: 048
  6. ASPIRIN [Concomitant]
     Indication: MYOCARDIAL INFARCTION
     Dosage: DAILY DOSE:100MG
     Route: 048
  7. CARVEDILOL [Concomitant]
     Indication: CARDIAC FAILURE
     Dosage: DAILY DOSE:10MG
     Route: 048
  8. PLAVIX [Concomitant]
     Indication: CARDIAC FAILURE
     Dosage: DAILY DOSE:75MG
     Route: 048
  9. LASIX [Concomitant]
     Indication: CARDIAC FAILURE
     Dosage: DAILY DOSE:40MG
     Route: 048
  10. TAKEPRON [Concomitant]
     Indication: REFLUX OESOPHAGITIS
     Dosage: DAILY DOSE:15MG
     Route: 048
     Dates: end: 20080526
  11. LIVALO [Concomitant]
     Indication: HYPERLIPIDAEMIA
     Dosage: DAILY DOSE:2MG
     Route: 048
     Dates: end: 20080526
  12. FERROMIA [Concomitant]
     Indication: IRON DEFICIENCY ANAEMIA
     Dosage: DAILY DOSE:50MG
     Route: 048
     Dates: end: 20080526
  13. MIYARI BACTERIA [Concomitant]
     Indication: IRRITABLE BOWEL SYNDROME
     Dosage: DAILY DOSE:18MG
     Route: 048
     Dates: end: 20080526
  14. CALCIUM POLYSTYRENE SULFONATE [Concomitant]
     Indication: HYPERKALAEMIA
     Dosage: DAILY DOSE:15GRAM
     Route: 048
     Dates: end: 20080526
  15. SUMIFERON [Concomitant]
     Indication: CHRONIC MYELOID LEUKAEMIA
     Dosage: DAILY DOSE:6000000
     Route: 058
     Dates: end: 19960101

REACTIONS (6)
  - ABDOMINAL PAIN [None]
  - BODY TEMPERATURE INCREASED [None]
  - CARDIAC FAILURE [None]
  - NAUSEA [None]
  - PNEUMATOSIS INTESTINALIS [None]
  - VOMITING [None]
